FAERS Safety Report 6020435-3 (Version None)
Quarter: 2008Q4

REPORT INFORMATION
  Report Type: 
  Country: None (occurrence: None)
  Receive Date: 20081226
  Receipt Date: 20081215
  Transmission Date: 20090506
  Serious: Yes (Death, Life-Threatening, Other)
  Sender: FDA-Public Use
  Company Number: CN-ROCHE-602912

PATIENT
  Age: 65 Year
  Sex: Female
  Weight: 60 kg

DRUGS (2)
  1. XELODA [Suspect]
     Indication: BREAST CANCER
     Route: 048
     Dates: start: 20071001, end: 20071101
  2. XELODA [Suspect]
     Route: 048
     Dates: start: 20071201, end: 20080625

REACTIONS (6)
  - DEATH [None]
  - DIZZINESS [None]
  - NASOPHARYNGITIS [None]
  - NAUSEA [None]
  - SKIN DISCOLOURATION [None]
  - WEIGHT DECREASED [None]
